FAERS Safety Report 5281737-1 (Version None)
Quarter: 2007Q1

REPORT INFORMATION
  Report Type: 
  Country: None (occurrence: None)
  Receive Date: 20070330
  Receipt Date: 20070323
  Transmission Date: 20070707
  Serious: Yes (Hospitalization)
  Sender: FDA-Public Use
  Company Number: JP-JPN-A200602033

PATIENT
  Age: 80 Year
  Sex: Male
  Weight: 57.1 kg

DRUGS (7)
  1. VALTREX [Suspect]
     Indication: HERPES ZOSTER
     Dosage: 500MG PER DAY
     Route: 048
     Dates: start: 20060609, end: 20060611
  2. CALTAN [Concomitant]
     Dosage: 4500MG PER DAY
     Route: 048
  3. ALFAROL [Concomitant]
     Dosage: .25MCG PER DAY
     Route: 048
  4. TAKEPRON [Concomitant]
     Dosage: 15MG PER DAY
     Route: 048
  5. ANPLAG [Concomitant]
     Dosage: 300MG PER DAY
     Route: 048
  6. CARNACULIN [Concomitant]
     Dosage: 100IU PER DAY
     Route: 048
  7. PURSENNID [Concomitant]
     Indication: CONSTIPATION
     Route: 048

REACTIONS (10)
  - APRAXIA [None]
  - DISORIENTATION [None]
  - EMOTIONAL DISORDER [None]
  - ENCEPHALOPATHY [None]
  - HALLUCINATION, VISUAL [None]
  - MANIA [None]
  - MENTAL IMPAIRMENT [None]
  - MOANING [None]
  - RESTLESSNESS [None]
  - SUICIDAL IDEATION [None]
